FAERS Safety Report 8111729-6 (Version None)
Quarter: 2012Q1

REPORT INFORMATION
  Report Type: 
  Country: None (occurrence: None)
  Receive Date: 20120131
  Receipt Date: 20120118
  Transmission Date: 20120608
  Serious: Yes (Other)
  Sender: FDA-Public Use
  Company Number: AUR-APL-2012-00505

PATIENT
  Age: 49 Year
  Sex: Female
  Weight: 74.83 kg

DRUGS (8)
  1. ALTACE [Suspect]
     Indication: HYPERTENSION
     Dosage: (5 MG), ORAL
     Route: 048
     Dates: start: 20081124
  2. LYRICA [Suspect]
     Indication: PRODUCT USED FOR UNKNOWN INDICATION
     Dosage: (225 MG), UNKNOWN
  3. XYREM [Suspect]
     Indication: FIBROMYALGIA
     Dosage: 4 GM (2 GM, 2 IN 1 D), ORAL
     Route: 048
     Dates: start: 20081124
  4. ATENOLOL [Suspect]
     Indication: PRODUCT USED FOR UNKNOWN INDICATION
     Dosage: (25 MG), UNKNOWN
  5. LEXAPRO [Suspect]
     Indication: DEPRESSION
     Dosage: (20 MG), UNKNOWN
  6. CYMBALTA [Suspect]
     Indication: PRODUCT USED FOR UNKNOWN INDICATION
     Dosage: (60 MG), UNKNOWN
  7. DYAZIDE [Concomitant]
  8. SIMVASTATIN [Suspect]
     Indication: PRODUCT USED FOR UNKNOWN INDICATION
     Dosage: (20 MG), UNKNOWN

REACTIONS (6)
  - OEDEMA PERIPHERAL [None]
  - ABDOMINAL DISTENSION [None]
  - BLOOD PRESSURE INCREASED [None]
  - DYSPEPSIA [None]
  - ABDOMINAL PAIN [None]
  - JOINT SWELLING [None]
